FAERS Safety Report 25919086 (Version 1)
Quarter: 2025Q4

REPORT INFORMATION
  Report Type: Spontaneous
  Country: US (occurrence: US)
  Receive Date: 20251014
  Receipt Date: 20251014
  Transmission Date: 20260118
  Serious: No
  Sender: BAYER HEALTHCARE PHARMACEUTICALS INC.
  Company Number: US-BAYER-2025A133292

PATIENT
  Age: 4 Year

DRUGS (2)
  1. CIPROFLOXACIN [Suspect]
     Active Substance: CIPROFLOXACIN
     Indication: Infective pulmonary exacerbation of cystic fibrosis
     Route: 048
  2. TOBRAMYCIN [Concomitant]
     Active Substance: TOBRAMYCIN
     Route: 042

REACTIONS (3)
  - Product use in unapproved indication [None]
  - Product prescribing issue [None]
  - Drug ineffective [None]
